FAERS Safety Report 23024296 (Version 1)
Quarter: 2023Q4

REPORT INFORMATION
  Report Type: Spontaneous
  Country: GB (occurrence: GB)
  Receive Date: 20231004
  Receipt Date: 20231004
  Transmission Date: 20240110
  Serious: Yes (Other)
  Sender: FDA-Public Use
  Company Number: GB-MHRA-MED-202203240929120320-YKL1R

PATIENT
  Age: 18 Year
  Sex: Female

DRUGS (2)
  1. NAPROXEN [Suspect]
     Active Substance: NAPROXEN
     Indication: Adverse drug reaction
     Dosage: 500MG; ;
     Route: 065
     Dates: start: 20220318, end: 20220322
  2. NAPROXEN [Suspect]
     Active Substance: NAPROXEN
     Indication: Pneumonitis

REACTIONS (2)
  - Asthma [Recovered/Resolved]
  - Medication error [Unknown]

NARRATIVE: CASE EVENT DATE: 20220321
